FAERS Safety Report 8188875-4 (Version None)
Quarter: 2012Q1

REPORT INFORMATION
  Report Type: 
  Country: None (occurrence: None)
  Receive Date: 20120306
  Receipt Date: 20120229
  Transmission Date: 20120608
  Serious: Yes (Other)
  Sender: FDA-Public Use
  Company Number: BR-ROCHE-1034321

PATIENT
  Sex: Female
  Weight: 71 kg

DRUGS (27)
  1. ACTEMRA [Suspect]
     Dates: start: 20110301
  2. ACTEMRA [Suspect]
     Dates: start: 20110701
  3. ACTEMRA [Suspect]
     Dates: start: 20111001
  4. ACTEMRA [Suspect]
     Dates: start: 20100201
  5. ACTEMRA [Suspect]
     Dates: start: 20101201
  6. ACTEMRA [Suspect]
     Dates: start: 20110601
  7. ACTEMRA [Suspect]
     Dates: start: 20111201
  8. METICORTEN [Concomitant]
  9. ACTEMRA [Suspect]
     Dates: start: 20100801
  10. ACTEMRA [Suspect]
     Dates: start: 20110101
  11. ACTEMRA [Suspect]
     Dates: start: 20110801
  12. ACTEMRA [Suspect]
     Dates: start: 20100301
  13. ACTEMRA [Suspect]
     Dates: start: 20100701
  14. ACTEMRA [Suspect]
     Dates: start: 20110401
  15. ACTEMRA [Suspect]
     Dates: start: 20091201
  16. ACTEMRA [Suspect]
     Dates: start: 20100601
  17. ACTEMRA [Suspect]
     Dates: start: 20110201
  18. NIMESULIDE [Concomitant]
  19. ACTEMRA [Suspect]
     Dates: start: 20100901
  20. ACTEMRA [Suspect]
     Dates: start: 20120101
  21. SIMVASTATIN [Concomitant]
  22. ACTEMRA [Suspect]
     Indication: RHEUMATOID ARTHRITIS
     Route: 042
     Dates: start: 20091126
  23. ACTEMRA [Suspect]
     Dates: start: 20100101
  24. ACTEMRA [Suspect]
     Dates: start: 20100501
  25. LOVAZA [Concomitant]
  26. ACTEMRA [Suspect]
     Dates: start: 20101001
  27. ACTEMRA [Suspect]
     Dates: start: 20111101

REACTIONS (2)
  - PNEUMONIA [None]
  - ULCERATIVE KERATITIS [None]
